FAERS Safety Report 8309626 (Version 5)
Quarter: 2013Q1

REPORT INFORMATION
  Report Type: Spontaneous
  Country: JP (occurrence: JP)
  Receive Date: 20111223
  Receipt Date: 20130107
  Transmission Date: 20140127
  Serious: Yes (Other)
  Sender: FDA-Public Use
  Company Number: JP-JNJFOC-20111207774

PATIENT
  Age: 71 Year
  Sex: Female

DRUGS (8)
  1. RISPERDAL [Suspect]
     Indication: RESTLESSNESS
     Dosage: AS NEEDED
     Route: 048
  2. RISPERDAL [Suspect]
     Indication: SCHIZOPHRENIA
     Dosage: AS NEEDED
     Route: 048
  3. ZYPREXA [Suspect]
     Indication: SCHIZOPHRENIA
     Route: 048
  4. LINTON [Concomitant]
     Route: 048
  5. AKIRIDEN [Concomitant]
     Route: 048
  6. MAGMITT [Concomitant]
     Route: 048
  7. HALRACK [Concomitant]
     Route: 048
  8. PHENYLEPHRINE HYDROCHLORIDE [Concomitant]
     Indication: MYDRIASIS
     Route: 047

REACTIONS (1)
  - Floppy iris syndrome [Recovered/Resolved]
